FAERS Safety Report 7032126-0 (Version None)
Quarter: 2010Q4

REPORT INFORMATION
  Report Type: 
  Country: None (occurrence: None)
  Receive Date: 20101007
  Receipt Date: 20100114
  Transmission Date: 20110411
  Serious: Yes (Life-Threatening, Hospitalization, Other)
  Sender: FDA-Public Use
  Company Number: DE-BRISTOL-MYERS SQUIBB COMPANY-14917389

PATIENT
  Age: 58 Year
  Sex: Female
  Weight: 53 kg

DRUGS (4)
  1. CETUXIMAB [Suspect]
     Indication: COLORECTAL CANCER
     Dosage: RECENT DOSE: 09DEC09
     Route: 042
     Dates: start: 20091021
  2. IRINOTECAN HCL [Suspect]
     Indication: COLORECTAL CANCER
     Dosage: RECENT DOSE: 02DEC09
     Route: 042
     Dates: start: 20091021
  3. FLUOROURACIL [Suspect]
     Indication: COLORECTAL CANCER
     Dosage: RECENT DOSE: 02DEC09
     Route: 042
     Dates: start: 20091021
  4. FOLINIC ACID [Suspect]
     Indication: COLORECTAL CANCER
     Dosage: RECENT DOSE: 02DEC09
     Route: 042
     Dates: start: 20091021

REACTIONS (1)
  - VENA CAVA THROMBOSIS [None]
